FAERS Safety Report 16035709 (Version 1)
Quarter: 2019Q1

REPORT INFORMATION
  Report Type: Spontaneous
  Country: GB (occurrence: GB)
  Receive Date: 20190305
  Receipt Date: 20190305
  Transmission Date: 20190418
  Serious: Yes (Other)
  Sender: FDA-Public Use
  Company Number: GB-MYLANLABS-2019M1018767

PATIENT
  Age: 56 Year
  Sex: Female
  Weight: 76.2 kg

DRUGS (13)
  1. UBIDECARENONE [Concomitant]
     Active Substance: UBIDECARENONE
  2. ZOLADEX [Concomitant]
     Active Substance: GOSERELIN ACETATE
  3. OLIVE OIL [Concomitant]
     Active Substance: OLIVE OIL
  4. PIPER NIGRUM [Concomitant]
  5. ASTAXANTHIN [Concomitant]
  6. BIOTIN [Concomitant]
     Active Substance: BIOTIN
  7. CALCIUM +D3 [Concomitant]
     Active Substance: CALCIUM\CHOLECALCIFEROL
  8. L-LYSINE                           /00919901/ [Concomitant]
     Active Substance: LYSINE
  9. TURMERIC                           /01079601/ [Concomitant]
     Active Substance: HERBALS\TURMERIC
  10. IBANDRONATE [Suspect]
     Active Substance: IBANDRONATE SODIUM
     Indication: BREAST CANCER
     Dosage: 1 DOSAGE FORM, QD
     Route: 048
     Dates: start: 20180526, end: 20180806
  11. SALBUTAMOL [Concomitant]
     Active Substance: ALBUTEROL
     Indication: PRODUCT USED FOR UNKNOWN INDICATION
  12. EXEMESTANE. [Concomitant]
     Active Substance: EXEMESTANE
  13. MELATONIN [Concomitant]
     Active Substance: MELATONIN

REACTIONS (9)
  - Vomiting [Not Recovered/Not Resolved]
  - Rash pruritic [Not Recovered/Not Resolved]
  - Eye pain [Not Recovered/Not Resolved]
  - Dyspepsia [Not Recovered/Not Resolved]
  - Ear pain [Recovering/Resolving]
  - Lip swelling [Recovering/Resolving]
  - Nausea [Not Recovered/Not Resolved]
  - Asthma [Not Recovered/Not Resolved]
  - Odynophagia [Recovering/Resolving]

NARRATIVE: CASE EVENT DATE: 20180601
